FAERS Safety Report 4280972-9 (Version None)
Quarter: 2004Q1

REPORT INFORMATION
  Report Type: 
  Country: None (occurrence: None)
  Receive Date: 20040127
  Receipt Date: 20040115
  Transmission Date: 20041129
  Serious: No
  Sender: FDA-Public Use
  Company Number: 30017928-C596361-1

PATIENT
  Sex: Female
  Weight: 75.2971 kg

DRUGS (24)
  1. DIANEAL PD-2 W/ DEXTROSE 1.5% [Suspect]
     Indication: PERITONEAL DIALYSIS
     Dosage: 12L OVER 9 HOURS (4 EXCHANGES OF 2500ML) WITH A LAST FILL OF 2L, EVERY NIGHT; INTRAPERITONEAL
     Route: 033
     Dates: start: 20030811
  2. WELCHOL [Concomitant]
  3. ASPIRIN [Concomitant]
  4. ATENOLOL [Concomitant]
  5. DARVOCET-N 100 [Concomitant]
  6. KLOR-CON [Concomitant]
  7. ZETIA [Concomitant]
  8. RENAX [Concomitant]
  9. ADVAIR DISKUS 100/50 [Concomitant]
  10. ATROVENT PRN [Concomitant]
  11. FLONASE PRN [Concomitant]
  12. LOTENSIL [Concomitant]
  13. HECTOROL [Concomitant]
  14. PHOSLO [Concomitant]
  15. MIRALAX [Concomitant]
  16. TRILLSATE [Concomitant]
  17. EPOGEN [Concomitant]
  18. MEDROL [Concomitant]
  19. AMBIEN [Concomitant]
  20. SODIUM BICARBONATE IN PLASTIC CONTAINER [Concomitant]
  21. SINGULAIR [Concomitant]
  22. ALLEGRA [Concomitant]
  23. PULMICORT INH [Concomitant]
  24. PREVACID [Concomitant]

REACTIONS (4)
  - HAEMODIALYSIS [None]
  - HYPERCALCAEMIA [None]
  - HYPERPHOSPHATAEMIA [None]
  - PRURITUS [None]
